FAERS Safety Report 17524139 (Version 1)
Quarter: 2020Q1

REPORT INFORMATION
  Report Type: Report from Study
  Country: NL (occurrence: NL)
  Receive Date: 20200310
  Receipt Date: 20200310
  Transmission Date: 20200409
  Serious: Yes (Other)
  Sender: FDA-Public Use
  Company Number: NL-AMGEN-NLDSL2020039414

PATIENT
  Age: 73 Year
  Sex: Female

DRUGS (9)
  1. REPATHA [Suspect]
     Active Substance: EVOLOCUMAB
     Indication: HYPERCHOLESTEROLAEMIA
     Dosage: 140 MILLIGRAM PER MILLILITRE, Q2WK
     Route: 058
  2. EZETIMIBE. [Concomitant]
     Active Substance: EZETIMIBE
     Dosage: 10 UNK
  3. SERETIDE [Concomitant]
     Active Substance: FLUTICASONE PROPIONATE\SALMETEROL XINAFOATE
     Dosage: 400 UNK
  4. FLIXONASE [Concomitant]
     Active Substance: FLUTICASONE PROPIONATE
     Dosage: 0.4 UNK
  5. HCT [Concomitant]
     Active Substance: HYDROCHLOROTHIAZIDE
     Dosage: 12.5 X 1
  6. CLOPIDOGREL [Concomitant]
     Active Substance: CLOPIDOGREL BISULFATE
     Dosage: 75 X 1
  7. PANTOPRAZOL [PANTOPRAZOLE] [Concomitant]
     Active Substance: PANTOPRAZOLE
  8. LOSARTAN KALIUM CF [Concomitant]
     Dosage: 50 X 1
  9. CALCIUM + VITAMIN D3 [Concomitant]
     Active Substance: CALCIUM\CHOLECALCIFEROL
     Dosage: 500 UNK

REACTIONS (5)
  - Palpitations [Recovering/Resolving]
  - Syncope [Recovering/Resolving]
  - Hypertension [Recovering/Resolving]
  - Chest discomfort [Recovering/Resolving]
  - Abdominal discomfort [Recovering/Resolving]

NARRATIVE: CASE EVENT DATE: 20200226
